FAERS Safety Report 24760196 (Version 1)
Quarter: 2024Q4

REPORT INFORMATION
  Report Type: Spontaneous
  Country: US (occurrence: US)
  Receive Date: 20241220
  Receipt Date: 20241220
  Transmission Date: 20250115
  Serious: No
  Sender: INCYTE
  Company Number: US-INCYTE CORPORATION-2024IN013074

PATIENT

DRUGS (2)
  1. JAKAFI [Suspect]
     Active Substance: RUXOLITINIB
     Indication: Cholangiocarcinoma
     Dosage: 20 MILLIGRAM, BID
     Route: 048
     Dates: start: 202411
  2. JAKAFI [Suspect]
     Active Substance: RUXOLITINIB
     Indication: Hepatic cancer
     Dosage: 10 MILLIGRAM
     Route: 048

REACTIONS (2)
  - Ill-defined disorder [Unknown]
  - Off label use [Unknown]

NARRATIVE: CASE EVENT DATE: 20241101
